FAERS Safety Report 4990742-1 (Version None)
Quarter: 2006Q2

REPORT INFORMATION
  Report Type: 
  Country: None (occurrence: None)
  Receive Date: 20060427
  Receipt Date: 20060413
  Transmission Date: 20061013
  Serious: Yes (Other)
  Sender: FDA-Public Use
  Company Number: C184

PATIENT
  Age: 50 Year
  Sex: Female
  Weight: 62.5964 kg

DRUGS (7)
  1. PRANACTIN-CITRIC, [Suspect]
     Indication: HELICOBACTER INFECTION
     Dosage: ONE POUCH PER TEST
     Dates: start: 20060412
  2. ... [Suspect]
  3. TAGAMET [Concomitant]
  4. ZELNORM [Concomitant]
  5. HRT [Concomitant]
  6. VITAMIN B COMPLEX CAP [Concomitant]
  7. LACTOSE TABLETS [Concomitant]

REACTIONS (1)
  - DYSPEPSIA [None]
